FAERS Safety Report 13939343 (Version 2)
Quarter: 2017Q4

REPORT INFORMATION
  Report Type: Report from Study
  Country: CR (occurrence: CR)
  Receive Date: 20170906
  Receipt Date: 20171006
  Transmission Date: 20180320
  Serious: Yes (Other)
  Sender: FDA-Public Use
  Company Number: PHHY2017CR129576

PATIENT
  Sex: Male
  Weight: 72 kg

DRUGS (1)
  1. TASIGNA [Suspect]
     Active Substance: NILOTINIB
     Indication: LEUKAEMIA
     Route: 065

REACTIONS (2)
  - Chronic myeloid leukaemia recurrent [Unknown]
  - Influenza [Recovered/Resolved]
